FAERS Safety Report 4862441-8 (Version None)
Quarter: 2005Q4

REPORT INFORMATION
  Report Type: 
  Country: None (occurrence: None)
  Receive Date: 20051221
  Receipt Date: 20051209
  Transmission Date: 20060501
  Serious: Yes (Other)
  Sender: FDA-Public Use
  Company Number: CA-BRISTOL-MYERS SQUIBB COMPANY-13219803

PATIENT
  Age: 79 Year
  Sex: Male

DRUGS (11)
  1. GATIFLOXACIN [Suspect]
     Route: 048
  2. GLYBURIDE [Interacting]
     Route: 048
  3. ALLOPURINOL [Concomitant]
  4. AMLODIPINE [Concomitant]
  5. ASPIRIN [Concomitant]
  6. CASODEX [Concomitant]
  7. IRBESARTAN [Concomitant]
  8. METFORMIN HCL [Concomitant]
  9. OXAZEPAM [Concomitant]
  10. TERAZOSIN [Concomitant]
  11. ZOLADEX [Concomitant]

REACTIONS (4)
  - COMA [None]
  - DRUG INTERACTION [None]
  - HAEMOGLOBIN DECREASED [None]
  - HYPOGLYCAEMIA [None]
